FAERS Safety Report 9562130 (Version 1)
Quarter: 2013Q3

REPORT INFORMATION
  Report Type: Spontaneous
  Country: FR (occurrence: FR)
  Receive Date: 20130927
  Receipt Date: 20130927
  Transmission Date: 20140515
  Serious: Yes (Hospitalization)
  Sender: FDA-Public Use
  Company Number: FR-009507513-1309FRA009554

PATIENT
  Age: 83 Year
  Sex: Female

DRUGS (4)
  1. FORTZAAR 100 MG/25 MG, COMPRIM? PELLICUL? [Suspect]
     Indication: HYPERTENSION
     Dosage: 1 DF, QD
     Route: 048
     Dates: end: 20120810
  2. DOGMATIL [Suspect]
     Indication: PSYCHOTIC DISORDER
     Dosage: 1 DF, QD
     Route: 048
  3. LEXOMIL [Suspect]
     Indication: ANXIETY
     Dosage: 0.25 DF, QD
     Route: 048
     Dates: end: 20120810
  4. NEBILOX [Suspect]
     Indication: HYPERTENSION
     Dosage: 1 DF, QD
     Route: 048

REACTIONS (3)
  - Fall [Recovered/Resolved]
  - Dehydration [Recovered/Resolved]
  - Hypokalaemia [Recovered/Resolved]
